FAERS Safety Report 6721509-1 (Version None)
Quarter: 2010Q2

REPORT INFORMATION
  Report Type: 
  Country: None (occurrence: None)
  Receive Date: 20100510
  Receipt Date: 20091209
  Transmission Date: 20101027
  Serious: Yes (Hospitalization)
  Sender: FDA-Public Use
  Company Number: TNZFR200800115

PATIENT
  Age: 86 Year
  Sex: Female

DRUGS (13)
  1. INNOHEP [Suspect]
     Indication: THROMBOSIS PROPHYLAXIS
     Dosage: 3500 IU,SUBCUTANEOUS
     Route: 058
     Dates: start: 20080601, end: 20080630
  2. ATACAND (CANDESARTAN CILEXTIL) (8 MILLIGRAM, TABLETS) [Concomitant]
  3. STILNOX (ZOLPIDEM) (8 MILLIGRAM, TABLETS) [Concomitant]
  4. INIPOMP (PANTOPRAZOLE) (20 MILLIGRAM, TABLETS) [Concomitant]
  5. DITROPAN (OXYBUTYNIN) (5 MILLIGRAM, TABLETS) [Concomitant]
  6. EFFEXOR (VENLAFAXINE) (37.5 MILLIGRAM, TABLETS) [Concomitant]
  7. DOGMATIL (SULPIRIDE) (50 MILLIGRAM, TABLETS) [Concomitant]
  8. DOLIPRANE (PARACETAMOL) (CAPSULES) [Concomitant]
  9. BRICANYL (TERBUTALINE SULFATE) (INHALANT) [Concomitant]
  10. PULMICORT [Concomitant]
  11. TITANOREINE (LIDOCAINE HYDROCHLORIDE, ZINC OXIDE, TITANIUM DIOXIDE, CH [Concomitant]
  12. SERESTA (OXAZEPAM) (10 MILLIGRAM, TABLETS) [Concomitant]
  13. POTION DE SAINT LOUIS (SODIUM BICARBONATE) [Concomitant]

REACTIONS (3)
  - DEEP VEIN THROMBOSIS [None]
  - HIP FRACTURE [None]
  - OFF LABEL USE [None]
